FAERS Safety Report 21007209 (Version 4)
Quarter: 2024Q2

REPORT INFORMATION
  Report Type: Report from Study
  Country: US (occurrence: US)
  Receive Date: 20220625
  Receipt Date: 20240412
  Transmission Date: 20240715
  Serious: Yes (Hospitalization, Other)
  Sender: FDA-Public Use
  Company Number: US-TAKEDA-2022TUS041234

PATIENT
  Age: 30 Year
  Sex: Male

DRUGS (48)
  1. TEDUGLUTIDE [Suspect]
     Active Substance: TEDUGLUTIDE
     Indication: Short-bowel syndrome
     Dosage: 3.7 MILLIGRAM, QD
     Route: 042
     Dates: start: 20191210, end: 20210503
  2. TEDUGLUTIDE [Suspect]
     Active Substance: TEDUGLUTIDE
     Indication: Short-bowel syndrome
     Dosage: 3.7 MILLIGRAM, QD
     Route: 042
     Dates: start: 20191210, end: 20210503
  3. TEDUGLUTIDE [Suspect]
     Active Substance: TEDUGLUTIDE
     Indication: Short-bowel syndrome
     Dosage: 3.7 MILLIGRAM, QD
     Route: 042
     Dates: start: 20191210, end: 20210503
  4. TEDUGLUTIDE [Suspect]
     Active Substance: TEDUGLUTIDE
     Indication: Short-bowel syndrome
     Dosage: 3.7 MILLIGRAM, QD
     Route: 042
     Dates: start: 20191210, end: 20210503
  5. Ceftriazona [Concomitant]
     Indication: Endocarditis
     Dosage: 2 GRAM, BID
     Route: 042
     Dates: start: 20210312, end: 20210421
  6. UNASYN [Concomitant]
     Active Substance: AMPICILLIN SODIUM\SULBACTAM SODIUM
     Indication: Endocarditis
     Dosage: 3 GRAM, QID
     Route: 042
     Dates: start: 20210318, end: 20210421
  7. AMPICILLIN [Concomitant]
     Active Substance: AMPICILLIN
     Indication: Endocarditis
     Dosage: 4 GRAM, TID
     Route: 042
     Dates: start: 20210312, end: 20210318
  8. Micafungin-nativ [Concomitant]
     Indication: Vascular device infection
     Dosage: 100 MILLIGRAM, QD
     Route: 042
     Dates: start: 20190116, end: 20190117
  9. Micafungin-nativ [Concomitant]
     Dosage: 100 MILLIGRAM, QD
     Route: 042
     Dates: start: 20201231, end: 20210105
  10. Micafungin-nativ [Concomitant]
     Dosage: 100 MILLIGRAM, QD
     Route: 042
     Dates: start: 20210203, end: 20210204
  11. Micafungin-nativ [Concomitant]
     Dosage: 100 MILLIGRAM, QD
     Route: 042
     Dates: start: 20210312, end: 20210421
  12. ZOSYN [Concomitant]
     Active Substance: PIPERACILLIN SODIUM\TAZOBACTAM SODIUM
     Indication: Infection
     Dosage: 4.5 GRAM, TID
     Route: 042
     Dates: start: 20190115, end: 20190118
  13. ZOSYN [Concomitant]
     Active Substance: PIPERACILLIN SODIUM\TAZOBACTAM SODIUM
     Dosage: 4.5 GRAM, TID
     Route: 042
     Dates: start: 20190302, end: 20190302
  14. ZOSYN [Concomitant]
     Active Substance: PIPERACILLIN SODIUM\TAZOBACTAM SODIUM
     Dosage: 4.5 GRAM, TID
     Route: 042
     Dates: start: 20201211, end: 20201212
  15. ZOSYN [Concomitant]
     Active Substance: PIPERACILLIN SODIUM\TAZOBACTAM SODIUM
     Dosage: 4.5 GRAM, TID
     Route: 042
     Dates: start: 20201230, end: 20210101
  16. VANCOMYCIN [Concomitant]
     Active Substance: VANCOMYCIN
     Indication: Infection
     Dosage: 1.5 GRAM, BID
     Route: 042
     Dates: start: 20190115, end: 20190117
  17. VANCOMYCIN [Concomitant]
     Active Substance: VANCOMYCIN
     Dosage: 1.75 GRAM
     Route: 042
     Dates: start: 20190228, end: 20190228
  18. VANCOMYCIN [Concomitant]
     Active Substance: VANCOMYCIN
     Dosage: 1 GRAM, BID
     Route: 042
     Dates: start: 20190301, end: 20190301
  19. VANCOMYCIN [Concomitant]
     Active Substance: VANCOMYCIN
     Dosage: 1.2 GRAM, QD
     Route: 042
     Dates: start: 20190301, end: 20190302
  20. VANCOMYCIN [Concomitant]
     Active Substance: VANCOMYCIN
     Dosage: 500 MILLIGRAM
     Route: 042
     Dates: start: 20190304, end: 20190304
  21. VANCOMYCIN [Concomitant]
     Active Substance: VANCOMYCIN
     Dosage: 1 GRAM, QD
     Route: 042
     Dates: start: 20190306, end: 20190313
  22. VANCOMYCIN [Concomitant]
     Active Substance: VANCOMYCIN
     Dosage: 1.25 GRAM, QD
     Route: 042
     Dates: start: 20190314, end: 20190413
  23. VANCOMYCIN [Concomitant]
     Active Substance: VANCOMYCIN
     Dosage: 1.75 GRAM
     Route: 042
     Dates: start: 20200919, end: 20200919
  24. VANCOMYCIN [Concomitant]
     Active Substance: VANCOMYCIN
     Dosage: 1 GRAM, TID
     Route: 042
     Dates: start: 20200919, end: 20210921
  25. VANCOMYCIN [Concomitant]
     Active Substance: VANCOMYCIN
     Dosage: 1.75 GRAM
     Route: 042
     Dates: start: 20201230, end: 20201230
  26. VANCOMYCIN [Concomitant]
     Active Substance: VANCOMYCIN
     Dosage: 1 GRAM, BID
     Route: 042
     Dates: start: 20201230, end: 20210101
  27. VANCOMYCIN [Concomitant]
     Active Substance: VANCOMYCIN
     Dosage: 1.75 GRAM
     Route: 042
     Dates: start: 20210203, end: 20210203
  28. VANCOMYCIN [Concomitant]
     Active Substance: VANCOMYCIN
     Dosage: 1 GRAM, QD
     Route: 042
     Dates: start: 20210204, end: 20210204
  29. VANCOMYCIN [Concomitant]
     Active Substance: VANCOMYCIN
     Dosage: 1.75 GRAM
     Route: 042
     Dates: start: 20210306, end: 20210306
  30. VANCOMYCIN [Concomitant]
     Active Substance: VANCOMYCIN
     Dosage: 1 GRAM, BID
     Route: 042
     Dates: start: 20210307, end: 20210310
  31. VANCOMYCIN [Concomitant]
     Active Substance: VANCOMYCIN
     Dosage: 1.5 GRAM, BID
     Route: 042
     Dates: start: 20210310, end: 20210312
  32. CEFTRIAXONE [Concomitant]
     Active Substance: CEFTRIAXONE\CEFTRIAXONE SODIUM
     Indication: Wound infection
     Dosage: 2 GRAM, QD
     Route: 042
     Dates: start: 20190117, end: 20190130
  33. CEFTRIAXONE [Concomitant]
     Active Substance: CEFTRIAXONE\CEFTRIAXONE SODIUM
     Indication: Infection
     Dosage: 2 GRAM, QD
     Route: 042
     Dates: start: 20201212, end: 20201222
  34. CEFTRIAXONE [Concomitant]
     Active Substance: CEFTRIAXONE\CEFTRIAXONE SODIUM
     Dosage: 2 GRAM, QD
     Route: 042
     Dates: start: 20210205, end: 20210219
  35. ELECTROLYTES NOS [Concomitant]
     Active Substance: ELECTROLYTES NOS
     Indication: Small intestinal obstruction
     Dosage: 2 LITER
     Route: 042
     Dates: start: 20190115, end: 20190115
  36. ELECTROLYTES NOS [Concomitant]
     Active Substance: ELECTROLYTES NOS
     Indication: Acute kidney injury
     Dosage: 2 LITER
     Route: 042
     Dates: start: 20190302, end: 20190302
  37. LR [Concomitant]
     Indication: Small intestinal obstruction
     Dosage: 1 LITER
     Route: 042
     Dates: start: 20190115, end: 20190115
  38. LR [Concomitant]
     Indication: Acute kidney injury
     Dosage: 2 LITER
     Route: 042
     Dates: start: 20200921, end: 20200921
  39. LR [Concomitant]
     Dosage: 1 LITER
     Route: 042
     Dates: start: 20201213, end: 20201213
  40. CEFTAZIDIME [Concomitant]
     Active Substance: CEFTAZIDIME
     Indication: Infection
     Dosage: 2 GRAM, TID
     Route: 042
     Dates: start: 20190228, end: 20190228
  41. LOVENOX [Concomitant]
     Active Substance: ENOXAPARIN SODIUM
     Indication: Jugular vein thrombosis
     Dosage: 80 MILLIGRAM, BID
     Route: 058
     Dates: start: 20190130, end: 20190320
  42. FLUCONAZOLE [Concomitant]
     Active Substance: FLUCONAZOLE
     Indication: Urinary tract infection
     Dosage: 800 MILLIGRAM
     Route: 042
     Dates: start: 20200923, end: 20200923
  43. FLUCONAZOLE [Concomitant]
     Active Substance: FLUCONAZOLE
     Indication: Infection
     Dosage: 400 MILLIGRAM, QD
     Route: 042
     Dates: start: 20200923, end: 20201005
  44. FLUCONAZOLE [Concomitant]
     Active Substance: FLUCONAZOLE
     Dosage: 800 MILLIGRAM
     Route: 048
     Dates: start: 20210106, end: 20210106
  45. FLUCONAZOLE [Concomitant]
     Active Substance: FLUCONAZOLE
     Dosage: 400 MILLIGRAM, QD
     Route: 048
     Dates: start: 20210106, end: 20210114
  46. CEFAZOLIN [Concomitant]
     Active Substance: CEFAZOLIN
     Indication: Infection
     Dosage: 2 GRAM, TID
     Route: 042
     Dates: start: 20200921, end: 20200928
  47. CEFEPIME [Concomitant]
     Active Substance: CEFEPIME HYDROCHLORIDE
     Indication: Infection
     Dosage: 2 GRAM, TID
     Route: 042
     Dates: start: 20210204, end: 20210205
  48. CEFEPIME [Concomitant]
     Active Substance: CEFEPIME HYDROCHLORIDE
     Dosage: 2 GRAM, TID
     Route: 042
     Dates: start: 20210306, end: 20210312

REACTIONS (3)
  - Vascular device infection [Recovered/Resolved]
  - Acute kidney injury [Recovered/Resolved]
  - Urinary tract infection [Recovered/Resolved]

NARRATIVE: CASE EVENT DATE: 20200911
